FAERS Safety Report 13284548 (Version 2)
Quarter: 2017Q4

REPORT INFORMATION
  Report Type: Report from Study
  Country: US (occurrence: US)
  Receive Date: 20170301
  Receipt Date: 20171204
  Transmission Date: 20180320
  Serious: No
  Sender: FDA-Public Use
  Company Number: PHEH2017US006191

PATIENT
  Sex: Male

DRUGS (1)
  1. ILARIS [Suspect]
     Active Substance: CANAKINUMAB
     Indication: STILL^S DISEASE
     Dosage: 110 MG, QMO
     Route: 058

REACTIONS (3)
  - Inappropriate schedule of drug administration [Unknown]
  - Influenza [Unknown]
  - Pyrexia [Unknown]
